FAERS Safety Report 5275666-7 (Version None)
Quarter: 2007Q1

REPORT INFORMATION
  Report Type: 
  Country: None (occurrence: None)
  Receive Date: 20070326
  Receipt Date: 20070320
  Transmission Date: 20070707
  Serious: Yes (Other)
  Sender: FDA-Public Use
  Company Number: 2007UW05550

PATIENT
  Age: 55 Year
  Sex: Female

DRUGS (3)
  1. CRESTOR [Suspect]
     Indication: LIPIDS INCREASED
     Route: 048
     Dates: start: 20070313
  2. DIOVAN [Concomitant]
  3. ADVAIR DISKUS 100/50 [Concomitant]
     Dosage: 250/50

REACTIONS (1)
  - TRANSIENT ISCHAEMIC ATTACK [None]
